FAERS Safety Report 21644494 (Version 5)
Quarter: 2022Q4

REPORT INFORMATION
  Report Type: Spontaneous
  Country: IT (occurrence: IT)
  Receive Date: 20221125
  Receipt Date: 20221216
  Transmission Date: 20230112
  Serious: Yes (Life-Threatening, Other)
  Sender: FDA-Public Use
  Company Number: IT-002147023-NVSC2022IT211234

PATIENT
  Age: 26 Day
  Sex: Male

DRUGS (12)
  1. AZACITIDINE [Suspect]
     Active Substance: AZACITIDINE
     Indication: Acute lymphocytic leukaemia recurrent
     Dosage: 75 MILLIGRAM/SQ. METER, Q21D
     Route: 065
  2. AZACITIDINE [Suspect]
     Active Substance: AZACITIDINE
     Indication: Acute lymphocytic leukaemia
     Dosage: 55 MILLIGRAM/SQ. METER, Q21D
     Route: 065
  3. AZACITIDINE [Suspect]
     Active Substance: AZACITIDINE
     Indication: B precursor type acute leukaemia
     Dosage: 55 MILLIGRAM/SQ. METER, Q21D
     Route: 065
  4. AZACITIDINE [Suspect]
     Active Substance: AZACITIDINE
     Indication: KMT2A gene mutation
     Dosage: 75 MILLIGRAM/SQ. METER, Q21D
     Route: 065
  5. AZACITIDINE [Suspect]
     Active Substance: AZACITIDINE
     Dosage: 55 MG/M2
     Route: 065
  6. AZACITIDINE [Suspect]
     Active Substance: AZACITIDINE
     Dosage: 55 MG/M2
     Route: 065
  7. AZACITIDINE [Suspect]
     Active Substance: AZACITIDINE
     Dosage: 75 MG/M2
     Route: 065
  8. AZACITIDINE [Suspect]
     Active Substance: AZACITIDINE
     Dosage: 40 MG/M2,
     Route: 065
  9. AZACITIDINE [Suspect]
     Active Substance: AZACITIDINE
     Dosage: DELAYED, 75 MG/M2
     Route: 065
  10. AZACITIDINE [Suspect]
     Active Substance: AZACITIDINE
     Dosage: FOR 5 DAYS FOLLOWED BY 7DAYS
     Route: 065
  11. PREDNISONE [Concomitant]
     Active Substance: PREDNISONE
     Indication: Acute lymphocytic leukaemia
     Dosage: GIVEN WITH EACH CYCLE OF AZACITIDINE
     Route: 065
  12. PREDNISONE [Concomitant]
     Active Substance: PREDNISONE
     Indication: KMT2A gene mutation

REACTIONS (7)
  - Drug ineffective [Unknown]
  - Gastrointestinal toxicity [Unknown]
  - Disease recurrence [Unknown]
  - Cytopenia [Unknown]
  - Off label use [Unknown]
  - Product use in unapproved indication [Unknown]
  - Product use issue [Unknown]
